FAERS Safety Report 4315608-1 (Version None)
Quarter: 2004Q1

REPORT INFORMATION
  Report Type: 
  Country: None (occurrence: None)
  Receive Date: 20040311
  Receipt Date: 20020130
  Transmission Date: 20041129
  Serious: Yes (Other)
  Sender: FDA-Public Use
  Company Number: US-GLAXOSMITHKLINE-A0357866A

PATIENT
  Age: 31 Year
  Sex: Female

DRUGS (5)
  1. PAXIL [Suspect]
     Indication: DEPRESSION
     Route: 048
     Dates: start: 20010101, end: 20010814
  2. DIAZEPAM [Concomitant]
     Indication: INSOMNIA
  3. CHINESE HERBS [Concomitant]
  4. HALCION [Concomitant]
     Dosage: .25MG AT NIGHT
  5. CELEXA [Concomitant]
     Route: 048
     Dates: start: 20010522

REACTIONS (36)
  - ABDOMINAL DISCOMFORT [None]
  - ABORTION SPONTANEOUS [None]
  - AGGRESSION [None]
  - AGITATION [None]
  - ANGER [None]
  - ANXIETY [None]
  - COMPLICATIONS OF MATERNAL EXPOSURE TO THERAPEUTIC DRUGS [None]
  - CONFUSIONAL STATE [None]
  - CONVULSION [None]
  - CRYING [None]
  - DEPENDENCE [None]
  - DIZZINESS [None]
  - DRUG DEPENDENCE [None]
  - DRUG INEFFECTIVE [None]
  - DRUG WITHDRAWAL SYNDROME [None]
  - EMOTIONAL DISTRESS [None]
  - EYE PAIN [None]
  - FATIGUE [None]
  - HEADACHE [None]
  - INFLUENZA [None]
  - INSOMNIA [None]
  - MATERNAL DRUGS AFFECTING FOETUS [None]
  - MOTOR DYSFUNCTION [None]
  - NAUSEA [None]
  - NIGHT SWEATS [None]
  - NIGHTMARE [None]
  - PANIC ATTACK [None]
  - PARAESTHESIA [None]
  - PARAESTHESIA ORAL [None]
  - PYREXIA [None]
  - SENSORY DISTURBANCE [None]
  - SUICIDAL IDEATION [None]
  - SUICIDE ATTEMPT [None]
  - TINNITUS [None]
  - TREMOR [None]
  - VOMITING [None]
